FAERS Safety Report 6253773-X (Version None)
Quarter: 2009Q2

REPORT INFORMATION
  Report Type: 
  Country: None (occurrence: None)
  Receive Date: 20090630
  Receipt Date: 20090619
  Transmission Date: 20091009
  Serious: Yes (Hospitalization)
  Sender: FDA-Public Use
  Company Number: GXKR2009GB07102

PATIENT
  Sex: Male

DRUGS (5)
  1. SIMVASTATIN [Suspect]
     Indication: BLOOD CHOLESTEROL INCREASED
     Dosage: 80 MG, ORAL
     Route: 048
     Dates: end: 20090518
  2. RISPERIDONE [Suspect]
     Indication: SCHIZOPHRENIA
     Dosage: 25 MG, INTRAMUSCULAR
     Route: 030
     Dates: start: 20090512, end: 20090518
  3. FLUOXETINE [Concomitant]
  4. METFORMIN HCL [Concomitant]
  5. QUETIAPINE FUMARATE [Concomitant]

REACTIONS (2)
  - DRUG INTERACTION [None]
  - RHABDOMYOLYSIS [None]
